FAERS Safety Report 5165725-1 (Version None)
Quarter: 2006Q4

REPORT INFORMATION
  Report Type: 
  Country: None (occurrence: None)
  Receive Date: 20061128
  Receipt Date: 20061117
  Transmission Date: 20070319
  Serious: Yes (Hospitalization)
  Sender: FDA-Public Use
  Company Number: 2006AL003616

PATIENT
  Age: 18 Year
  Sex: Female

DRUGS (5)
  1. TRAMADOL HCL [Suspect]
     Indication: BACK PAIN
     Dosage: 150 MG; QD; PO
     Route: 048
     Dates: start: 20061030, end: 20061031
  2. CO-DYDRAMOL [Concomitant]
  3. DIAZEPAM [Concomitant]
  4. DICLOFENAC SODIUM [Concomitant]
  5. OMEPRAZOLE [Concomitant]

REACTIONS (2)
  - MUSCLE CONTRACTIONS INVOLUNTARY [None]
  - MYOCLONUS [None]
